FAERS Safety Report 15663229 (Version 2)
Quarter: 2019Q1

REPORT INFORMATION
  Report Type: Spontaneous
  Country: US (occurrence: US)
  Receive Date: 20181128
  Receipt Date: 20190114
  Transmission Date: 20190417
  Serious: No
  Sender: FDA-Public Use
  Company Number: US-ASTRAZENECA-2018SF44902

PATIENT
  Sex: Female

DRUGS (2)
  1. CHOLESTEROL [Concomitant]
     Active Substance: CHOLESTEROL
     Indication: BLOOD CHOLESTEROL
  2. SYMBICORT [Suspect]
     Active Substance: BUDESONIDE\FORMOTEROL FUMARATE DIHYDRATE
     Indication: COUGH
     Dosage: 160/4.5 MCG TWO RESPIRATORY INHALATIONS TWICE A DAY
     Route: 055
     Dates: start: 201807

REACTIONS (7)
  - Off label use [Not Recovered/Not Resolved]
  - Circumstance or information capable of leading to medication error [Not Recovered/Not Resolved]
  - Blood cholesterol abnormal [Not Recovered/Not Resolved]
  - Intentional product misuse [Not Recovered/Not Resolved]
  - Product dose omission [Not Recovered/Not Resolved]
  - Device malfunction [Not Recovered/Not Resolved]
  - Product use in unapproved indication [Not Recovered/Not Resolved]
